FAERS Safety Report 7209745-1 (Version None)
Quarter: 2010Q4

REPORT INFORMATION
  Report Type: 
  Country: None (occurrence: None)
  Receive Date: 20101126
  Receipt Date: 20101014
  Transmission Date: 20110411
  Serious: No
  Sender: FDA-Public Use
  Company Number: 316918

PATIENT
  Age: 62 Year
  Sex: Female

DRUGS (1)
  1. VICTOZA [Suspect]
     Indication: ACCIDENTAL EXPOSURE
     Dosage: ONCE, ORAL
     Route: 048

REACTIONS (1)
  - ACCIDENTAL EXPOSURE [None]
